FAERS Safety Report 26164012 (Version 1)
Quarter: 2025Q4

REPORT INFORMATION
  Report Type: Spontaneous
  Country: US (occurrence: US)
  Receive Date: 20251216
  Receipt Date: 20251216
  Transmission Date: 20260118
  Serious: No
  Sender: BAYER HEALTHCARE PHARMACEUTICALS INC.
  Company Number: US-BAYER-2025A163649

PATIENT
  Age: 75 Year
  Sex: Female

DRUGS (1)
  1. LYNKUET [Suspect]
     Active Substance: ELINZANETANT
     Indication: Hot flush
     Route: 048

REACTIONS (1)
  - Product prescribing issue [None]
